FAERS Safety Report 17471419 (Version 2)
Quarter: 2021Q2

REPORT INFORMATION
  Report Type: Spontaneous
  Country: US (occurrence: US)
  Receive Date: 20200228
  Receipt Date: 20210524
  Transmission Date: 20210716
  Serious: Yes (Hospitalization, Other)
  Sender: FDA-Public Use
  Company Number: US-SA-2019SA322013

PATIENT
  Age: 68 Year
  Sex: Male

DRUGS (6)
  1. LIDOCAINE. [Concomitant]
     Active Substance: LIDOCAINE
     Indication: THERMAL BURN
  2. DUPIXENT [Suspect]
     Active Substance: DUPILUMAB
     Indication: DERMATITIS ATOPIC
     Dosage: 300 MG, QOW
     Route: 058
     Dates: start: 20170906
  3. CEREVEN [Concomitant]
     Indication: BLISTER
  4. CEREVEN [Concomitant]
     Indication: THERMAL BURN
  5. AQUAPHOR [WHITE SOFT PARAFFIN] [Concomitant]
     Indication: THERMAL BURN
  6. AQUAPHOR [WHITE SOFT PARAFFIN] [Concomitant]
     Indication: BLISTER

REACTIONS (4)
  - Back pain [Unknown]
  - Cellulitis [Recovering/Resolving]
  - Type 2 diabetes mellitus [Recovering/Resolving]
  - Hepatic cancer metastatic [Unknown]

NARRATIVE: CASE EVENT DATE: 20210430
